FAERS Safety Report 6792725-8 (Version None)
Quarter: 2010Q2

REPORT INFORMATION
  Report Type: 
  Country: None (occurrence: None)
  Receive Date: 20100624
  Receipt Date: 20090303
  Transmission Date: 20101027
  Serious: Yes (Other)
  Sender: FDA-Public Use
  Company Number: US-PFIZER INC-2008077500

PATIENT
  Age: 21 Year
  Sex: Female

DRUGS (6)
  1. GEODON [Suspect]
     Indication: ANXIETY DISORDER
  2. GEODON [Suspect]
     Indication: SLEEP DISORDER
  3. DEPAKOTE [Concomitant]
  4. TOPAMAX [Concomitant]
  5. BENZODIAZEPINE DERIVATIVES [Concomitant]
  6. ANTIDEPRESSANTS [Concomitant]

REACTIONS (2)
  - GRAND MAL CONVULSION [None]
  - INCORRECT DRUG DOSAGE FORM ADMINISTERED [None]
